FAERS Safety Report 17089786 (Version 2)
Quarter: 2019Q4

REPORT INFORMATION
  Report Type: Report from Study
  Country: US (occurrence: US)
  Receive Date: 20191128
  Receipt Date: 20191209
  Transmission Date: 20200122
  Serious: Yes (Other)
  Sender: FDA-Public Use
  Company Number: US-BAXTER-2019BAX024353

PATIENT

DRUGS (1)
  1. DOBUTAMINE HYDROCHLORIDE IN DEXTROSE [Suspect]
     Active Substance: DEXTROSE MONOHYDRATE\DEXTROSE MONOHYDRATE\DOBUTAMINE HYDROCHLORIDE\DOBUTAMINE HYDROCHLORIDE
     Indication: CARDIAC PHARMACOLOGIC STRESS TEST
     Dosage: VIA INTRAVENOUS INFUSION PUMP, DOSES STARTING AT 5 MCG/KG/MIN AND INCREASING AT 3-MINUTE INTERVALS
     Route: 042

REACTIONS (1)
  - Arrhythmia supraventricular [Unknown]
